FAERS Safety Report 24690076 (Version 1)
Quarter: 2024Q4

REPORT INFORMATION
  Report Type: Spontaneous
  Country: US (occurrence: US)
  Receive Date: 20241203
  Receipt Date: 20241203
  Transmission Date: 20250115
  Serious: Yes (Other)
  Sender: AUROBINDO
  Company Number: US-AUROBINDO-AUR-APL-2024-058042

PATIENT
  Sex: Male

DRUGS (12)
  1. HYDROXYCHLOROQUINE [Suspect]
     Active Substance: HYDROXYCHLOROQUINE
     Indication: Burning sensation
     Dosage: 200 MILLIGRAM, TWO TIMES A DAY
     Route: 065
  2. HYDROXYCHLOROQUINE [Suspect]
     Active Substance: HYDROXYCHLOROQUINE
     Indication: Rash pruritic
  3. HYDROXYCHLOROQUINE [Suspect]
     Active Substance: HYDROXYCHLOROQUINE
     Indication: Exfoliative rash
  4. METHOTREXATE [Suspect]
     Active Substance: METHOTREXATE
     Indication: Burning sensation
     Dosage: 20 MILLIGRAM, EVERY WEEK
     Route: 065
  5. METHOTREXATE [Suspect]
     Active Substance: METHOTREXATE
     Indication: Rash pruritic
  6. METHOTREXATE [Suspect]
     Active Substance: METHOTREXATE
     Indication: Exfoliative rash
  7. TRIAMCINOLONE [Suspect]
     Active Substance: TRIAMCINOLONE
     Indication: Burning sensation
     Dosage: UNK
     Route: 061
  8. TRIAMCINOLONE [Suspect]
     Active Substance: TRIAMCINOLONE
     Indication: Rash pruritic
  9. TRIAMCINOLONE [Suspect]
     Active Substance: TRIAMCINOLONE
     Indication: Exfoliative rash
  10. FOLIC ACID [Suspect]
     Active Substance: FOLIC ACID
     Indication: Burning sensation
     Dosage: 1 MILLIGRAM, DAILY
     Route: 065
  11. FOLIC ACID [Suspect]
     Active Substance: FOLIC ACID
     Indication: Rash pruritic
  12. FOLIC ACID [Suspect]
     Active Substance: FOLIC ACID
     Indication: Exfoliative rash

REACTIONS (1)
  - Drug ineffective [Unknown]
